FAERS Safety Report 23348371 (Version 2)
Quarter: 2024Q1

REPORT INFORMATION
  Report Type: Other
  Country: US (occurrence: None)
  Receive Date: 20231228
  Receipt Date: 20240124
  Transmission Date: 20240410
  Serious: No
  Sender: FDA-Public Use
  Company Number: US-ROCHE-3482918

PATIENT
  Age: 54 Year
  Sex: Female
  Weight: 50.848 kg

DRUGS (1)
  1. OCREVUS [Suspect]
     Active Substance: OCRELIZUMAB
     Indication: Relapsing multiple sclerosis
     Dosage: LAST OCREVUS INFUSION WAS IN /APR/2023
     Route: 042

REACTIONS (1)
  - Balance disorder [Not Recovered/Not Resolved]
